FAERS Safety Report 8643238 (Version 2)
Quarter: 2013Q3

REPORT INFORMATION
  Report Type: Spontaneous
  Country: MX (occurrence: None)
  Receive Date: 20120618
  Receipt Date: 20130725
  Transmission Date: 20140515
  Serious: Yes (Hospitalization)
  Sender: FDA-Public Use
  Company Number: ENTC2012-0250

PATIENT
  Age: 86 Year
  Sex: Male

DRUGS (3)
  1. STALEVO [Suspect]
     Dosage: 50/12.5/200 MG
  2. AVELOX [Concomitant]
  3. COMBIVENT [Concomitant]

REACTIONS (1)
  - Pneumonia [Recovered/Resolved]
